FAERS Safety Report 19897685 (Version 1)
Quarter: 2021Q3

REPORT INFORMATION
  Report Type: Spontaneous
  Country: US (occurrence: US)
  Receive Date: 20210929
  Receipt Date: 20210929
  Transmission Date: 20211014
  Serious: No
  Sender: FDA-Public Use
  Company Number: US-OTSUKA-2021_020068

PATIENT
  Age: 80 Year
  Sex: Female

DRUGS (3)
  1. XANAX [Concomitant]
     Active Substance: ALPRAZOLAM
     Indication: PRODUCT USED FOR UNKNOWN INDICATION
     Dosage: UNK
     Route: 065
  2. REXULTI [Suspect]
     Active Substance: BREXPIPRAZOLE
     Dosage: BEGAN 0.5 MG AT NIGHT
     Route: 065
     Dates: start: 20210609
  3. REXULTI [Suspect]
     Active Substance: BREXPIPRAZOLE
     Indication: DEPRESSION
     Dosage: 0.25 MG AT NIGHT FOR 3 WEEKS
     Route: 065
     Dates: start: 202105

REACTIONS (5)
  - Impaired work ability [Unknown]
  - Arthritis [Unknown]
  - Fear of death [Unknown]
  - Therapeutic product effect incomplete [Unknown]
  - Underdose [Unknown]

NARRATIVE: CASE EVENT DATE: 202105
